FAERS Safety Report 7347955-3 (Version None)
Quarter: 2011Q1

REPORT INFORMATION
  Report Type: 
  Country: None (occurrence: None)
  Receive Date: 20110302
  Receipt Date: 20110217
  Transmission Date: 20110831
  Serious: Yes (Other)
  Sender: FDA-Public Use
  Company Number: 2011SP008248

PATIENT
  Age: 24 Year
  Sex: Female

DRUGS (1)
  1. IMPLANON [Suspect]
     Indication: CONTRACEPTION
     Dates: start: 20101021, end: 20110217

REACTIONS (5)
  - DRY SKIN [None]
  - SWELLING FACE [None]
  - IMPLANT SITE SWELLING [None]
  - OEDEMA PERIPHERAL [None]
  - IMPLANT SITE DISCHARGE [None]
